FAERS Safety Report 22090127 (Version 5)
Quarter: 2023Q2

REPORT INFORMATION
  Report Type: Spontaneous
  Country: DE (occurrence: DE)
  Receive Date: 20230313
  Receipt Date: 20230628
  Transmission Date: 20230721
  Serious: Yes (Hospitalization, Other)
  Sender: FDA-Public Use
  Company Number: DE-SA-SAC20230105000100

PATIENT
  Age: 62 Year
  Sex: Female
  Weight: 67 kg

DRUGS (30)
  1. DEXAMETHASONE [Suspect]
     Active Substance: DEXAMETHASONE
     Indication: Plasma cell myeloma refractory
     Dosage: 24 MG, QW
     Route: 065
     Dates: start: 20221121, end: 20221218
  2. DEXAMETHASONE [Suspect]
     Active Substance: DEXAMETHASONE
     Dosage: 24 MG, QW
     Route: 065
     Dates: start: 20221128
  3. DEXAMETHASONE [Suspect]
     Active Substance: DEXAMETHASONE
     Dosage: 24 MG, QW
     Route: 065
     Dates: start: 20221205
  4. DEXAMETHASONE [Suspect]
     Active Substance: DEXAMETHASONE
     Dosage: 24 MG, QW
     Route: 065
     Dates: start: 20221219, end: 20230115
  5. DEXAMETHASONE [Suspect]
     Active Substance: DEXAMETHASONE
     Dosage: 24 MG, QW
     Route: 065
     Dates: start: 20230116, end: 20230212
  6. DEXAMETHASONE [Suspect]
     Active Substance: DEXAMETHASONE
     Dosage: 24 MG, QW
     Route: 065
     Dates: start: 20230213, end: 20230312
  7. DEXAMETHASONE [Suspect]
     Active Substance: DEXAMETHASONE
     Dosage: 24 MG, QW
     Route: 065
     Dates: start: 20230313, end: 20230409
  8. DEXAMETHASONE [Suspect]
     Active Substance: DEXAMETHASONE
     Dosage: 24 MG, QW
     Route: 065
     Dates: start: 20230410, end: 20230508
  9. DEXAMETHASONE [Suspect]
     Active Substance: DEXAMETHASONE
     Dosage: 24 MG, QW
     Route: 065
     Dates: start: 20230515, end: 20230611
  10. DEXAMETHASONE [Suspect]
     Active Substance: DEXAMETHASONE
     Dosage: 24 MG, QW
     Route: 065
     Dates: start: 20230612
  11. POMALIDOMIDE [Suspect]
     Active Substance: POMALIDOMIDE
     Indication: Plasma cell myeloma refractory
     Dosage: 2 MG, QD
     Route: 065
     Dates: start: 20221121, end: 20221212
  12. POMALIDOMIDE [Suspect]
     Active Substance: POMALIDOMIDE
     Dosage: 4 MG, QW
     Route: 065
     Dates: start: 20221130
  13. POMALIDOMIDE [Suspect]
     Active Substance: POMALIDOMIDE
     Dosage: 4 MG, QW
     Route: 065
     Dates: start: 20221207
  14. POMALIDOMIDE [Suspect]
     Active Substance: POMALIDOMIDE
     Dosage: 2 MG, QD
     Route: 065
     Dates: start: 20230216, end: 20230315
  15. POMALIDOMIDE [Suspect]
     Active Substance: POMALIDOMIDE
     Dosage: 2 MG, QD
     Route: 065
     Dates: start: 20230413, end: 20230510
  16. POMALIDOMIDE [Suspect]
     Active Substance: POMALIDOMIDE
     Dosage: 2 MG, QD
     Route: 065
     Dates: start: 20230515, end: 20230604
  17. POMALIDOMIDE [Suspect]
     Active Substance: POMALIDOMIDE
     Dosage: 2 MG, QD
     Route: 065
     Dates: start: 20230612
  18. ISATUXIMAB [Suspect]
     Active Substance: ISATUXIMAB
     Indication: Plasma cell myeloma refractory
     Dosage: 650 MG, QW
     Route: 065
     Dates: start: 20221121, end: 20221206
  19. ISATUXIMAB [Suspect]
     Active Substance: ISATUXIMAB
     Dosage: 650 MG, QW
     Route: 065
     Dates: start: 20221130, end: 20221207
  20. ISATUXIMAB [Suspect]
     Active Substance: ISATUXIMAB
     Dosage: 650 MG, QW
     Route: 065
     Dates: start: 20221207, end: 20221213
  21. ISATUXIMAB [Suspect]
     Active Substance: ISATUXIMAB
     Dosage: 1300 MG, QW (650 MG, BIW)
     Route: 065
     Dates: start: 20230209, end: 20230215
  22. ISATUXIMAB [Suspect]
     Active Substance: ISATUXIMAB
     Dosage: 1300 MG, QW (650 MG, BIW)
     Route: 065
     Dates: start: 20230216, end: 20230315
  23. ISATUXIMAB [Suspect]
     Active Substance: ISATUXIMAB
     Dosage: 1300 MG, QW (650 MG, BIW)
     Route: 065
     Dates: start: 20230316, end: 20230412
  24. ISATUXIMAB [Suspect]
     Active Substance: ISATUXIMAB
     Dosage: 1300 MG, QW (650 MG, BIW)
     Route: 065
     Dates: start: 20230413, end: 20230510
  25. ISATUXIMAB [Suspect]
     Active Substance: ISATUXIMAB
     Dosage: 1300 MG, QW (650 MG, BIW)
     Route: 065
     Dates: start: 20230511, end: 20230608
  26. ISATUXIMAB [Suspect]
     Active Substance: ISATUXIMAB
     Dosage: 1300 MG, QW (650 MG, BIW)
     Route: 065
     Dates: start: 20230612
  27. CITALOPRAM [Concomitant]
     Active Substance: CITALOPRAM HYDROBROMIDE
     Indication: Product used for unknown indication
     Dosage: UNK
     Route: 065
     Dates: start: 2022
  28. PANTOPRAZOLE SODIUM [Concomitant]
     Active Substance: PANTOPRAZOLE SODIUM
     Indication: Prophylaxis
     Dosage: UNK
     Route: 065
     Dates: start: 2021
  29. CLEMASTINE [Concomitant]
     Active Substance: CLEMASTINE
     Indication: Prophylaxis
     Dosage: UNK
     Route: 065
     Dates: start: 20221121
  30. ACETAMINOPHEN [Concomitant]
     Active Substance: ACETAMINOPHEN
     Indication: Prophylaxis
     Dosage: UNK
     Route: 065
     Dates: start: 20221121

REACTIONS (5)
  - Pneumonia [Recovered/Resolved]
  - Neutropenia [Not Recovered/Not Resolved]
  - Pain in extremity [Not Recovered/Not Resolved]
  - Peripheral swelling [Recovering/Resolving]
  - Nasopharyngitis [Recovered/Resolved]

NARRATIVE: CASE EVENT DATE: 20221207
